FAERS Safety Report 25150157 (Version 1)
Quarter: 2025Q2

REPORT INFORMATION
  Report Type: Report from Study
  Country: US (occurrence: US)
  Receive Date: 20250402
  Receipt Date: 20250402
  Transmission Date: 20250717
  Serious: No
  Sender: VANDA PHARMACEUTICALS
  Company Number: US-VANDA PHARMACEUTICALS, INC-2025PONUS001151

PATIENT
  Sex: Female

DRUGS (5)
  1. PONESIMOD [Suspect]
     Active Substance: PONESIMOD
     Indication: Multiple sclerosis
     Dosage: 20 MILLIGRAM, QD
     Route: 048
     Dates: start: 20250124
  2. VITAMINS [Concomitant]
     Active Substance: VITAMINS
     Indication: Product used for unknown indication
     Dosage: UNK, QD
  3. VITAMIN B12 [Concomitant]
     Active Substance: CYANOCOBALAMIN
     Indication: Product used for unknown indication
  4. VITAMIN C [Concomitant]
     Active Substance: ASCORBIC ACID
     Indication: Product used for unknown indication
  5. CHOLECALCIFEROL [Concomitant]
     Active Substance: CHOLECALCIFEROL
     Indication: Product used for unknown indication

REACTIONS (2)
  - Balance disorder [Not Recovered/Not Resolved]
  - Product dose omission issue [Unknown]
